FAERS Safety Report 6793648-0 (Version None)
Quarter: 2010Q2

REPORT INFORMATION
  Report Type: 
  Country: None (occurrence: None)
  Receive Date: 20100624
  Receipt Date: 20090218
  Transmission Date: 20101027
  Serious: Yes (Other)
  Sender: FDA-Public Use
  Company Number: US-PFIZER INC-2009154548

PATIENT
  Sex: Female
  Weight: 81.6 kg

DRUGS (2)
  1. GEODON [Suspect]
     Indication: BIPOLAR I DISORDER
     Dosage: 60 MG, 1X/DAY
     Dates: start: 20090102, end: 20090109
  2. GEODON [Suspect]
     Dosage: 60 MG, 2X/DAY
     Dates: start: 20090101

REACTIONS (5)
  - ANXIETY [None]
  - BREAST PAIN [None]
  - DYSTONIA [None]
  - GALACTORRHOEA [None]
  - VISUAL IMPAIRMENT [None]
